FAERS Safety Report 12617495 (Version 1)
Quarter: 2016Q3

REPORT INFORMATION
  Report Type: Report from Study
  Country: US (occurrence: US)
  Receive Date: 20160803
  Receipt Date: 20160803
  Transmission Date: 20161109
  Serious: Yes (Life-Threatening, Hospitalization, Other)
  Sender: FDA-Public Use
  Company Number: US-AMGEN-USASP2011034809

PATIENT
  Age: 52 Year
  Sex: Female

DRUGS (4)
  1. ENBREL [Suspect]
     Active Substance: ETANERCEPT
     Indication: RHEUMATOID ARTHRITIS
     Dosage: 25 MG, Q2WK
     Route: 065
  2. HUMIRA [Concomitant]
     Active Substance: ADALIMUMAB
     Dosage: UNK
     Route: 065
  3. ENBREL [Suspect]
     Active Substance: ETANERCEPT
     Dosage: 50 MG, QWK
     Route: 065
  4. ENBREL [Suspect]
     Active Substance: ETANERCEPT
     Dosage: 50 MG, QWK
     Route: 065

REACTIONS (13)
  - Staphylococcal infection [Unknown]
  - Pulmonary thrombosis [Unknown]
  - Scab [Recovering/Resolving]
  - Burns second degree [Recovering/Resolving]
  - Feeling abnormal [Recovered/Resolved]
  - Joint destruction [Unknown]
  - Malaise [Not Recovered/Not Resolved]
  - Lung disorder [Unknown]
  - Arthritis [Recovered/Resolved]
  - Influenza like illness [Recovered/Resolved]
  - Thrombosis [Unknown]
  - Arthritis bacterial [Unknown]
  - Rheumatoid arthritis [Unknown]

NARRATIVE: CASE EVENT DATE: 200610
